FAERS Safety Report 19884428 (Version 1)
Quarter: 2021Q3

REPORT INFORMATION
  Report Type: Spontaneous
  Country: US (occurrence: US)
  Receive Date: 20210924
  Receipt Date: 20210924
  Transmission Date: 20211014
  Serious: Yes (Hospitalization)
  Sender: FDA-Public Use
  Company Number: None

PATIENT
  Age: 52 Year
  Sex: Male

DRUGS (2)
  1. PREDNISONE TAB [Concomitant]
     Active Substance: PREDNISONE
  2. TADALAFIL 20 MG TAB [Suspect]
     Active Substance: TADALAFIL
     Indication: PULMONARY ARTERIAL HYPERTENSION
     Dosage: TAKE 1 TABLET BY MOUTH TWICE DAILY
     Route: 048
     Dates: start: 20190423

REACTIONS (3)
  - Platelet disorder [None]
  - Infection [None]
  - Full blood count decreased [None]

NARRATIVE: CASE EVENT DATE: 20210831
